FAERS Safety Report 15789802 (Version 3)
Quarter: 2019Q1

REPORT INFORMATION
  Report Type: Spontaneous
  Country: ES (occurrence: ES)
  Receive Date: 20190104
  Receipt Date: 20190223
  Transmission Date: 20190417
  Serious: Yes (Life-Threatening, Hospitalization, Other)
  Sender: FDA-Public Use
  Company Number: PHHY2019ES000576

PATIENT
  Age: 27 Year
  Sex: Male
  Weight: 52 kg

DRUGS (10)
  1. TRIMETHOPRIM SULFAMETHOXAZOLE [Concomitant]
     Active Substance: SULFAMETHOXAZOLE\TRIMETHOPRIM
     Indication: ANTIBIOTIC PROPHYLAXIS
     Dosage: UNK(160TRIMETHOPRIM /800 MG SULFAMETHOXAZOLE)
     Route: 065
  2. TACROLIMUS. [Suspect]
     Active Substance: TACROLIMUS
     Indication: IMMUNOSUPPRESSANT DRUG THERAPY
  3. COLISTIN [Concomitant]
     Active Substance: COLISTIN
     Route: 055
  4. COLISTIN [Concomitant]
     Active Substance: COLISTIN
     Indication: ANTIBIOTIC PROPHYLAXIS
     Dosage: 2X10^6 IU, Q12H
     Route: 055
  5. MYCOPHENOLATE MOFETIL. [Suspect]
     Active Substance: MYCOPHENOLATE MOFETIL
     Indication: LUNG TRANSPLANT
     Dosage: 1.5 G, Q8H
     Route: 065
  6. MYCOPHENOLATE MOFETIL. [Suspect]
     Active Substance: MYCOPHENOLATE MOFETIL
     Indication: IMMUNOSUPPRESSANT DRUG THERAPY
  7. DEFLAZACORTE [Suspect]
     Active Substance: DEFLAZACORT
     Indication: IMMUNOSUPPRESSANT DRUG THERAPY
  8. TACROLIMUS. [Suspect]
     Active Substance: TACROLIMUS
     Indication: LUNG TRANSPLANT
     Dosage: 7 MG, Q12H
     Route: 065
  9. GANCICLOVIR. [Concomitant]
     Active Substance: GANCICLOVIR
     Indication: ANTIBIOTIC PROPHYLAXIS
     Dosage: 900 MG, Q24H
     Route: 065
  10. DEFLAZACORTE [Suspect]
     Active Substance: DEFLAZACORT
     Indication: LUNG TRANSPLANT
     Dosage: 30 MG, QD
     Route: 065

REACTIONS (12)
  - Burkholderia cepacia complex infection [Recovered/Resolved]
  - Cough [Recovering/Resolving]
  - Malaise [Recovering/Resolving]
  - Lung infiltration [Recovered/Resolved]
  - Dyspnoea [Recovering/Resolving]
  - Respiratory failure [Recovered/Resolved]
  - Hypoxia [Recovered/Resolved]
  - Product use in unapproved indication [Unknown]
  - Pyrexia [Recovered/Resolved]
  - Multiple organ dysfunction syndrome [Recovered/Resolved]
  - Pneumonia bacterial [Recovered/Resolved]
  - Septic shock [Recovered/Resolved]
